FAERS Safety Report 15688426 (Version 1)
Quarter: 2018Q4

REPORT INFORMATION
  Report Type: Spontaneous
  Country: US (occurrence: US)
  Receive Date: 20181205
  Receipt Date: 20181205
  Transmission Date: 20190205
  Serious: No
  Sender: FDA-Public Use
  Company Number: US-ASTRAZENECA-2018SF46065

PATIENT
  Age: 727 Month
  Sex: Female
  Weight: 64 kg

DRUGS (3)
  1. BYETTA [Suspect]
     Active Substance: EXENATIDE
     Indication: TYPE 2 DIABETES MELLITUS
     Dosage: UNKNOWN DOSE, TWO TIMES A DAY
     Route: 065
     Dates: start: 201810, end: 201810
  2. METFORMIN [Concomitant]
     Active Substance: METFORMIN HYDROCHLORIDE
     Indication: TYPE 2 DIABETES MELLITUS
     Route: 048
  3. BYDUREON [Suspect]
     Active Substance: EXENATIDE
     Indication: TYPE 2 DIABETES MELLITUS
     Route: 058
     Dates: start: 201810

REACTIONS (7)
  - Device leakage [Unknown]
  - Injection site pain [Unknown]
  - Circumstance or information capable of leading to medication error [Recovered/Resolved]
  - Anxiety [Unknown]
  - Product dose omission [Recovered/Resolved]
  - Injection site haemorrhage [Unknown]
  - Fear of injection [Not Recovered/Not Resolved]

NARRATIVE: CASE EVENT DATE: 201810
